FAERS Safety Report 8220674-7 (Version None)
Quarter: 2012Q1

REPORT INFORMATION
  Report Type: 
  Country: None (occurrence: None)
  Receive Date: 20120320
  Receipt Date: 20120307
  Transmission Date: 20120608
  Serious: Yes (Other)
  Sender: FDA-Public Use
  Company Number: US-ELI_LILLY_AND_COMPANY-US201201000815

PATIENT
  Sex: Male
  Weight: 95 kg

DRUGS (1)
  1. PROZAC [Suspect]
     Dosage: 20 MG, BID
     Route: 048
     Dates: start: 19930101, end: 20111201

REACTIONS (36)
  - IMPULSE-CONTROL DISORDER [None]
  - DYSPEPSIA [None]
  - TACHYPHRENIA [None]
  - HYPOTENSION [None]
  - MUSCLE RIGIDITY [None]
  - RESTLESSNESS [None]
  - SUICIDAL IDEATION [None]
  - SLEEP DISORDER [None]
  - SINUSITIS [None]
  - LOGORRHOEA [None]
  - CONFUSIONAL STATE [None]
  - PALPITATIONS [None]
  - PANIC ATTACK [None]
  - COMA [None]
  - DISTURBANCE IN ATTENTION [None]
  - AGGRESSION [None]
  - LOSS OF LIBIDO [None]
  - ABNORMAL DREAMS [None]
  - OROPHARYNGEAL PAIN [None]
  - INSOMNIA [None]
  - ASTHENIA [None]
  - BALANCE DISORDER [None]
  - HALLUCINATION [None]
  - HYPERTENSION [None]
  - DEPRESSION [None]
  - ANXIETY [None]
  - INAPPROPRIATE AFFECT [None]
  - MEMORY IMPAIRMENT [None]
  - ARTHRALGIA [None]
  - ANGER [None]
  - IRRITABILITY [None]
  - AFFECTIVE DISORDER [None]
  - SUICIDE ATTEMPT [None]
  - NERVOUSNESS [None]
  - AGITATION [None]
  - MENTAL STATUS CHANGES [None]
